FAERS Safety Report 8555443-1 (Version None)
Quarter: 2012Q3

REPORT INFORMATION
  Report Type: 
  Country: None (occurrence: None)
  Receive Date: 20120731
  Receipt Date: 20110825
  Transmission Date: 20120928
  Serious: Yes (Other)
  Sender: FDA-Public Use
  Company Number: US-ASTRAZENECA-2011SE12519

PATIENT
  Age: 636 Month

DRUGS (3)
  1. SEROQUEL [Suspect]
     Dosage: 100 MG TO 300 MG
     Route: 048
     Dates: start: 20050301
  2. SEROQUEL [Suspect]
     Dosage: 200 MG TO 800 MG
     Route: 048
     Dates: start: 20070201
  3. XANAX [Concomitant]
     Route: 048
     Dates: start: 20050101

REACTIONS (4)
  - DIABETIC COMA [None]
  - TYPE 2 DIABETES MELLITUS [None]
  - ADVERSE DRUG REACTION [None]
  - PANCREATITIS [None]
